FAERS Safety Report 21939995 (Version 1)
Quarter: 2023Q1

REPORT INFORMATION
  Report Type: Report from Study
  Country: US (occurrence: US)
  Receive Date: 20230201
  Receipt Date: 20230201
  Transmission Date: 20230418
  Serious: Yes (Hospitalization)
  Sender: FDA-Public Use
  Company Number: US-EXELIXIS-CABO-22057528

PATIENT
  Sex: Male

DRUGS (11)
  1. CABOMETYX [Suspect]
     Active Substance: CABOZANTINIB S-MALATE
     Indication: Renal cancer
     Dosage: 40 MG, QD
     Route: 048
     Dates: start: 202204
  2. CABOMETYX [Suspect]
     Active Substance: CABOZANTINIB S-MALATE
     Indication: Metastases to lung
  3. OPDIVO [Concomitant]
     Active Substance: NIVOLUMAB
  4. DIETARY SUPPLEMENT\PROBIOTICS [Concomitant]
     Active Substance: DIETARY SUPPLEMENT\PROBIOTICS
  5. ZINC [Concomitant]
     Active Substance: ZINC
  6. FISH OIL [Concomitant]
     Active Substance: FISH OIL
  7. VITAMINS [Concomitant]
     Active Substance: VITAMINS
  8. SODIUM BICARBONATE [Concomitant]
     Active Substance: SODIUM BICARBONATE
  9. VITAMIN D2 [Concomitant]
     Active Substance: ERGOCALCIFEROL
  10. PREDNISONE [Concomitant]
     Active Substance: PREDNISONE
  11. VANCOMYCIN HYDROCHLORIDE [Concomitant]
     Active Substance: VANCOMYCIN HYDROCHLORIDE

REACTIONS (5)
  - Large intestine perforation [Unknown]
  - Epistaxis [Recovering/Resolving]
  - Stomatitis [Recovering/Resolving]
  - Haemoptysis [Recovering/Resolving]
  - COVID-19 [Recovering/Resolving]
